FAERS Safety Report 5085152-5 (Version None)
Quarter: 2006Q3

REPORT INFORMATION
  Report Type: 
  Country: None (occurrence: None)
  Receive Date: 20060720
  Receipt Date: 20050702
  Transmission Date: 20061208
  Serious: Yes (Life-Threatening, Other)
  Sender: FDA-Public Use
  Company Number: 2005067954

PATIENT
  Age: 38 Year
  Sex: Male

DRUGS (3)
  1. CELEBREX [Suspect]
     Indication: PAIN
     Dosage: (200 MG),ORAL
     Route: 048
     Dates: start: 20050317, end: 20050418
  2. PREVACID [Concomitant]
  3. CRESTOR [Concomitant]

REACTIONS (1)
  - ANGIONEUROTIC OEDEMA [None]
